FAERS Safety Report 22200686 (Version 2)
Quarter: 2023Q2

REPORT INFORMATION
  Report Type: Report from Study
  Country: NL (occurrence: NL)
  Receive Date: 20230412
  Receipt Date: 20230501
  Transmission Date: 20230722
  Serious: Yes (Death, Life-Threatening, Hospitalization, Other)
  Sender: FDA-Public Use
  Company Number: NL-GILEAD-2023-0623279

PATIENT
  Age: 62 Year
  Sex: Female
  Weight: 55 kg

DRUGS (1)
  1. SACITUZUMAB GOVITECAN-HZIY [Suspect]
     Active Substance: SACITUZUMAB GOVITECAN-HZIY
     Indication: Breast cancer metastatic
     Dosage: 540 MG, LAST CYCLE NO. 11
     Route: 042
     Dates: start: 20220527, end: 20230105

REACTIONS (3)
  - Disease progression [Fatal]
  - Pleural effusion [Fatal]
  - Respiratory tract infection [Fatal]

NARRATIVE: CASE EVENT DATE: 20230101
